FAERS Safety Report 22029397 (Version 2)
Quarter: 2023Q1

REPORT INFORMATION
  Report Type: Report from Study
  Country: CA (occurrence: None)
  Receive Date: 20230223
  Receipt Date: 20230310
  Transmission Date: 20230418
  Serious: Yes (Hospitalization)
  Sender: FDA-Public Use
  Company Number: CA-Eisai Medical Research-EC-2023-133660

PATIENT
  Age: 61 Year
  Sex: Male
  Weight: 111 kg

DRUGS (3)
  1. LENVIMA [Suspect]
     Active Substance: LENVATINIB
     Indication: Hepatocellular carcinoma
     Route: 048
     Dates: start: 20230201, end: 20230208
  2. LENVIMA [Suspect]
     Active Substance: LENVATINIB
     Route: 048
     Dates: start: 20230212, end: 20230303
  3. LENVIMA [Suspect]
     Active Substance: LENVATINIB
     Route: 048
     Dates: start: 202303

REACTIONS (5)
  - Confusional state [Unknown]
  - Constipation [Unknown]
  - Blood pressure increased [Unknown]
  - Nausea [Unknown]
  - Dehydration [Unknown]

NARRATIVE: CASE EVENT DATE: 20230201
